FAERS Safety Report 5793276-X (Version None)
Quarter: 2008Q2

REPORT INFORMATION
  Report Type: 
  Country: None (occurrence: None)
  Receive Date: 20080626
  Receipt Date: 20080626
  Transmission Date: 20081010
  Serious: No
  Sender: FDA-Public Use
  Company Number: None

PATIENT
  Age: 43 Year
  Sex: Male
  Weight: 88.5 kg

DRUGS (1)
  1. PROPOFOL [Suspect]
     Indication: ENDOTRACHEAL INTUBATION
     Dosage: 200 MCG X1 IV
     Route: 042
     Dates: start: 20080201

REACTIONS (2)
  - RASH [None]
  - WHEEZING [None]
